FAERS Safety Report 5540859-8 (Version None)
Quarter: 2007Q4

REPORT INFORMATION
  Report Type: 
  Country: None (occurrence: None)
  Receive Date: 20071129
  Receipt Date: 20070815
  Transmission Date: 20080405
  Serious: Yes (Other)
  Sender: FDA-Public Use
  Company Number: US200708000357

PATIENT
  Age: 55 Year
  Sex: Female

DRUGS (2)
  1. ZYPREXA [Suspect]
     Indication: ANXIETY
     Dosage: 5 MG, ORAL
     Route: 048
     Dates: start: 20070601, end: 20070701
  2. CHEMOTHERAPEUTICS NOS [Concomitant]

REACTIONS (2)
  - HEPATIC ENZYME INCREASED [None]
  - PANCREATITIS [None]
